FAERS Safety Report 5751672-0 (Version None)
Quarter: 2008Q2

REPORT INFORMATION
  Report Type: 
  Country: None (occurrence: None)
  Receive Date: 20080528
  Receipt Date: 20080521
  Transmission Date: 20081010
  Serious: Yes (Death, Other)
  Sender: FDA-Public Use
  Company Number: PHHY2008JP08010

PATIENT
  Age: 70 Year
  Sex: Male

DRUGS (5)
  1. DICLOFENAC SODIUM [Suspect]
  2. METHOTREXATE [Suspect]
     Indication: METASTASES TO MENINGES
     Dosage: 15 MG TWICE A WEEK
  3. METHOTREXATE [Suspect]
     Dosage: 5 MG ONCE IN A WEEK
  4. LOXOPROFEN [Suspect]
  5. SULFAMETHOXAZOLE AND TRIMETHOPRIM [Suspect]

REACTIONS (3)
  - DRUG INTERACTION [None]
  - HYPOALBUMINAEMIA [None]
  - PANCYTOPENIA [None]
